FAERS Safety Report 13201293 (Version 1)
Quarter: 2017Q1

REPORT INFORMATION
  Report Type: Report from Study
  Country: US (occurrence: US)
  Receive Date: 20170209
  Receipt Date: 20170209
  Transmission Date: 20170428
  Serious: Yes (Hospitalization)
  Sender: FDA-Public Use
  Company Number: US-VIFOR (INTERNATIONAL) INC.-VIT-2017-01083

PATIENT
  Age: 62 Year
  Sex: Male

DRUGS (14)
  1. SENSIPAR [Concomitant]
     Active Substance: CINACALCET HYDROCHLORIDE
  2. TRAMADOL. [Concomitant]
     Active Substance: TRAMADOL
  3. VELTASSA [Suspect]
     Active Substance: PATIROMER
     Dates: start: 20161206
  4. VELTASSA [Suspect]
     Active Substance: PATIROMER
     Indication: HYPERKALAEMIA
     Route: 048
     Dates: start: 20161210
  5. CLOPIDOGREL [Concomitant]
     Active Substance: CLOPIDOGREL BISULFATE
  6. MESALAMINE. [Concomitant]
     Active Substance: MESALAMINE
  7. WARFARIN [Concomitant]
     Active Substance: WARFARIN
  8. RENVELA [Concomitant]
     Active Substance: SEVELAMER CARBONATE
  9. VELTASSA [Suspect]
     Active Substance: PATIROMER
     Route: 048
     Dates: start: 20161230
  10. ATORVASTATIN [Concomitant]
     Active Substance: ATORVASTATIN
  11. ONDANSETRON [Concomitant]
     Active Substance: ONDANSETRON
  12. MIDODRINE [Concomitant]
     Active Substance: MIDODRINE
  13. APRISO [Concomitant]
     Active Substance: MESALAMINE
  14. GABAPENTIN. [Concomitant]
     Active Substance: GABAPENTIN

REACTIONS (3)
  - Heart valve operation [Unknown]
  - Inappropriate schedule of drug administration [Unknown]
  - Drug dose omission [Unknown]

NARRATIVE: CASE EVENT DATE: 201701
